FAERS Safety Report 7726827-6 (Version None)
Quarter: 2011Q4

REPORT INFORMATION
  Report Type: 
  Country: None (occurrence: None)
  Receive Date: 20110902
  Receipt Date: 20110824
  Transmission Date: 20120403
  Serious: Yes (Other)
  Sender: FDA-Public Use
  Company Number: SA-VIIV HEALTHCARE LIMITED-B0743889A

PATIENT
  Age: 30 Year
  Sex: Female

DRUGS (3)
  1. LAMIVUDINE (EPIVIR HBV) [Suspect]
     Indication: HIV INFECTION
     Route: 065
  2. ZIDOVUDINE [Suspect]
     Indication: HIV INFECTION
     Route: 065
  3. NELFINAVIR MESYLATE [Suspect]
     Indication: HIV INFECTION
     Route: 065

REACTIONS (4)
  - DIARRHOEA [None]
  - VOMITING [None]
  - DRUG INTOLERANCE [None]
  - NAUSEA [None]
